FAERS Safety Report 23066835 (Version 2)
Quarter: 2023Q4

REPORT INFORMATION
  Report Type: Spontaneous
  Country: US (occurrence: US)
  Receive Date: 20231016
  Receipt Date: 20231208
  Transmission Date: 20240110
  Serious: No
  Sender: FDA-Public Use
  Company Number: US-ABBVIE-5450129

PATIENT
  Sex: Female

DRUGS (1)
  1. IMBRUVICA [Suspect]
     Active Substance: IBRUTINIB
     Indication: Product used for unknown indication
     Dosage: FORM STRENGTH 140 MILLIGRAM, TOOK 3 TABLETS?TABLET SHOULD BE TAKEN WITH A GLASS OF WATER
     Route: 048
     Dates: start: 20210901

REACTIONS (1)
  - Unevaluable event [Unknown]
